FAERS Safety Report 7259015-0 (Version None)
Quarter: 2011Q1

REPORT INFORMATION
  Report Type: 
  Country: None (occurrence: None)
  Receive Date: 20110129
  Receipt Date: 20100624
  Transmission Date: 20110831
  Serious: No
  Sender: FDA-Public Use
  Company Number: US-ABBOTT-10P-163-0653538-00

PATIENT
  Sex: Female

DRUGS (15)
  1. TRIAMTERINE [Concomitant]
     Indication: HYPERTENSION
  2. CELEBREX [Concomitant]
     Indication: ARTHRITIS
  3. SYNTHROID [Concomitant]
     Indication: HORMONE REPLACEMENT THERAPY
  4. HYDROCHLOROTHIAZIDE [Concomitant]
     Indication: HYPERTENSION
  5. PROPOXYPHENE NAPSYLATE [Concomitant]
     Indication: PAIN
  6. FISH OIL [Concomitant]
     Indication: SUPPLEMENTATION THERAPY
  7. HUMIRA [Suspect]
     Indication: PSORIATIC ARTHROPATHY
     Dates: start: 20100401
  8. APAP TAB [Concomitant]
     Indication: PAIN
  9. PANTOPRAZOLE [Concomitant]
     Indication: GASTROOESOPHAGEAL REFLUX DISEASE
  10. FOLIC ACID [Concomitant]
     Indication: VITAMIN SUPPLEMENTATION
  11. MTX [Concomitant]
     Indication: ARTHRITIS
  12. VITAMIN D [Concomitant]
     Indication: VITAMIN SUPPLEMENTATION
  13. HYDROCODONE [Concomitant]
     Indication: PAIN
  14. ASCORBIC ACID [Concomitant]
     Indication: VITAMIN SUPPLEMENTATION
  15. LORAZEPAM [Concomitant]
     Indication: ANXIETY
     Dosage: 1-2 DAILY

REACTIONS (5)
  - DEVICE MALFUNCTION [None]
  - URTICARIA [None]
  - WRONG TECHNIQUE IN DRUG USAGE PROCESS [None]
  - INCORRECT DOSE ADMINISTERED [None]
  - INJECTION SITE PAIN [None]
